FAERS Safety Report 11267077 (Version 1)
Quarter: 2015Q3

REPORT INFORMATION
  Report Type: Spontaneous
  Country: US (occurrence: US)
  Receive Date: 20150713
  Receipt Date: 20150713
  Transmission Date: 20151125
  Serious: No
  Sender: FDA-Public Use
  Company Number: US-ASTRAZENECA-2015SE65487

PATIENT
  Age: 619 Month
  Sex: Female
  Weight: 81.6 kg

DRUGS (3)
  1. GABAPENTIN. [Concomitant]
     Active Substance: GABAPENTIN
     Indication: NEURALGIA
  2. MOVANTIK [Suspect]
     Active Substance: NALOXEGOL OXALATE
     Indication: CONSTIPATION
     Route: 048
     Dates: start: 201506
  3. BACLOFEN. [Concomitant]
     Active Substance: BACLOFEN
     Route: 037

REACTIONS (4)
  - Product use issue [Unknown]
  - Gastrointestinal motility disorder [Not Recovered/Not Resolved]
  - Gastrointestinal disorder [Unknown]
  - Proctalgia [Unknown]

NARRATIVE: CASE EVENT DATE: 201506
